FAERS Safety Report 15327678 (Version 1)
Quarter: 2018Q3

REPORT INFORMATION
  Report Type: Spontaneous
  Country: CA (occurrence: CA)
  Receive Date: 20180828
  Receipt Date: 20180828
  Transmission Date: 20181010
  Serious: Yes (Other)
  Sender: FDA-Public Use
  Company Number: CA-SA-2018SA145164

PATIENT
  Age: 52 Year
  Sex: Male
  Weight: 84.5 kg

DRUGS (17)
  1. PNEUMOVAX 23 [Concomitant]
     Active Substance: PNEUMOCOCCAL VACCINE, POLYVALENT 23
  2. TYLENOL 8HR [Concomitant]
     Active Substance: ACETAMINOPHEN
  3. ZOSTAVAX [Concomitant]
     Active Substance: VARICELLA-ZOSTER VIRUS STRAIN OKA/MERCK LIVE ANTIGEN
  4. PERINDOPRIL [Concomitant]
     Active Substance: PERINDOPRIL
  5. SUCRALFATE. [Concomitant]
     Active Substance: SUCRALFATE
  6. ROSUVASTATIN. [Concomitant]
     Active Substance: ROSUVASTATIN
  7. ENBREL [Suspect]
     Active Substance: ETANERCEPT
     Indication: RHEUMATOID ARTHRITIS
     Dosage: 50 MG, QW
     Dates: start: 20020115
  8. AZATHIOPRINE. [Concomitant]
     Active Substance: AZATHIOPRINE
     Dosage: UNK
     Dates: start: 2013
  9. PREVNAR 13 [Concomitant]
     Active Substance: PNEUMOCOCCAL 13-VALENT CONJUGATE VACCINE
  10. PROCTOSEDYL BD [Concomitant]
  11. INFLUENZA [Concomitant]
     Active Substance: INFLUENZA VIRUS VACCINE
  12. CALCIUM [Concomitant]
     Active Substance: CALCIUM
  13. ACTONEL [Suspect]
     Active Substance: RISEDRONATE SODIUM
     Dosage: 150, QM
  14. MOBICOX [Concomitant]
     Active Substance: MELOXICAM
  15. TD ADSORBED [Concomitant]
  16. LEFLUNOMIDE. [Suspect]
     Active Substance: LEFLUNOMIDE
     Dosage: 20 MG, QD
     Dates: start: 2000, end: 2006
  17. MOTILIUM M [Concomitant]

REACTIONS (32)
  - Type 2 diabetes mellitus [Unknown]
  - Myelitis transverse [Recovering/Resolving]
  - Rheumatoid arthritis [Unknown]
  - Oropharyngeal pain [Unknown]
  - Hypercholesterolaemia [Unknown]
  - Shoulder arthroplasty [Unknown]
  - Nasal crusting [Unknown]
  - Bone erosion [Unknown]
  - Glaucoma [Unknown]
  - Felty^s syndrome [Unknown]
  - Transaminases increased [Unknown]
  - Arteriosclerosis [Unknown]
  - Muscle twitching [Unknown]
  - Hypothyroidism [Unknown]
  - Migraine with aura [Not Recovered/Not Resolved]
  - Perineal disorder [Unknown]
  - Inguinal hernia repair [Unknown]
  - Joint dislocation reduction [Unknown]
  - Dyslipidaemia [Unknown]
  - Osteoarthritis [Unknown]
  - Joint dislocation [Unknown]
  - Cataract [Unknown]
  - Neutropenia [Unknown]
  - Knee arthroplasty [Unknown]
  - Muscle spasms [Unknown]
  - Gastrooesophageal reflux disease [Unknown]
  - Hypertension [Unknown]
  - Osteoporosis [Unknown]
  - Extranodal marginal zone B-cell lymphoma (MALT type) [Unknown]
  - Renal impairment [Unknown]
  - Hip arthroplasty [Unknown]
  - Foot operation [Unknown]

NARRATIVE: CASE EVENT DATE: 20021218
